FAERS Safety Report 7200429-2 (Version None)
Quarter: 2010Q4

REPORT INFORMATION
  Report Type: 
  Country: None (occurrence: None)
  Receive Date: 20101228
  Receipt Date: 20101221
  Transmission Date: 20110411
  Serious: Yes (Death, Life-Threatening, Hospitalization, Disabling)
  Sender: FDA-Public Use
  Company Number: US-MERCK-1010USA00071

PATIENT
  Age: 19 Year
  Sex: Male
  Weight: 115 kg

DRUGS (8)
  1. PRIMAXIN [Suspect]
     Indication: BACTERAEMIA
     Route: 042
     Dates: start: 20100917, end: 20101102
  2. ACYCLOVIR [Concomitant]
     Route: 065
     Dates: start: 20100901
  3. VANCOMYCIN [Concomitant]
     Indication: BACTERAEMIA
     Route: 042
     Dates: start: 20100923, end: 20101010
  4. LEVOFLOXACIN [Concomitant]
     Route: 065
  5. METRONIDAZOLE [Concomitant]
     Route: 065
  6. ETHAMBUTOL HYDROCHLORIDE [Concomitant]
     Route: 065
  7. BACTRIM DS [Concomitant]
     Route: 065
  8. AMPHOTERICIN B [Concomitant]
     Route: 065

REACTIONS (4)
  - ASPERGILLOSIS [None]
  - ENTEROCOCCAL INFECTION [None]
  - SEPTIC SHOCK [None]
  - TREMOR [None]
